FAERS Safety Report 8206352-9 (Version None)
Quarter: 2012Q1

REPORT INFORMATION
  Report Type: 
  Country: None (occurrence: None)
  Receive Date: 20120313
  Receipt Date: 20120306
  Transmission Date: 20120608
  Serious: Yes (Hospitalization)
  Sender: FDA-Public Use
  Company Number: PHEH2012US005189

PATIENT
  Age: 67 Year
  Sex: Female
  Weight: 62.132 kg

DRUGS (11)
  1. LIPITOR [Concomitant]
     Dosage: 10 MG, QD
  2. VITAMIN D [Concomitant]
     Dosage: 500 U, UNK
  3. CALCIDITROL +VITAMIN D [Concomitant]
     Dosage: 5000 U, UNK
  4. RECLAST [Suspect]
     Indication: OSTEOPOROSIS
     Dosage: 5 MG, UNK
     Route: 042
     Dates: start: 20120229
  5. LANSOPRAZOLE [Concomitant]
     Dosage: UNK UKN, UNK
  6. LOSARTAN POTASSIUM [Concomitant]
     Dosage: 50 MG, QD
  7. TRIAMTERENE AND HYDROCHLOROTHIAZID [Concomitant]
     Dosage: 1 DF, (37.5MG/25 MG)
  8. POTASSIUM CHLORIDE [Concomitant]
     Dosage: 40 MEQ, UNK
  9. RECLAST [Suspect]
     Dosage: UNK UKN, UNK
  10. CALCIUM CARBONATE [Concomitant]
     Dosage: UNK UKN, UNK
  11. VERAPAMIL [Concomitant]
     Dosage: 240 MG, UNK

REACTIONS (4)
  - PULMONARY OEDEMA [None]
  - DYSPNOEA [None]
  - CHEST PAIN [None]
  - PERICARDIAL EFFUSION [None]
